FAERS Safety Report 7166475-2 (Version None)
Quarter: 2010Q4

REPORT INFORMATION
  Report Type: 
  Country: None (occurrence: None)
  Receive Date: 20101216
  Receipt Date: 20101206
  Transmission Date: 20110411
  Serious: Yes (Other)
  Sender: FDA-Public Use
  Company Number: PHEH2010US03862

PATIENT
  Sex: Female

DRUGS (12)
  1. VIVELLE-DOT [Suspect]
     Route: 062
  2. CALCIUM [Concomitant]
  3. VITAMIN D [Concomitant]
  4. MULTIVITAMINS W/FLUORIDE [Concomitant]
  5. NORETHINDRONE [Concomitant]
  6. RADIATION THERAPY [Concomitant]
  7. HORMONES NOS [Concomitant]
  8. ACTONEL [Concomitant]
  9. FOLIC ACID [Concomitant]
  10. FISH OIL [Concomitant]
  11. PROMETRIUM [Concomitant]
  12. LOESTRIN 1.5/30 [Concomitant]

REACTIONS (12)
  - ACTINIC KERATOSIS [None]
  - ARTHRALGIA [None]
  - BREAST CANCER [None]
  - BREAST LUMP REMOVAL [None]
  - CONSTIPATION [None]
  - FALL [None]
  - FIBROCYSTIC BREAST DISEASE [None]
  - HAND FRACTURE [None]
  - PARAESTHESIA [None]
  - POLYP [None]
  - UPPER LIMB FRACTURE [None]
  - URINARY TRACT INFECTION [None]
